FAERS Safety Report 5414351-5 (Version None)
Quarter: 2007Q3

REPORT INFORMATION
  Report Type: 
  Country: None (occurrence: None)
  Receive Date: 20070814
  Receipt Date: 20070802
  Transmission Date: 20080115
  Serious: Yes (Other)
  Sender: FDA-Public Use
  Company Number: US-PFIZER INC-2007065829

PATIENT
  Sex: Male
  Weight: 96.818 kg

DRUGS (5)
  1. CHANTIX [Suspect]
     Indication: SMOKING CESSATION THERAPY
     Route: 048
     Dates: start: 20070701, end: 20070801
  2. LAMICTAL [Concomitant]
  3. ABILIFY [Concomitant]
  4. ATIVAN [Concomitant]
     Indication: TREMOR
  5. PRILOSEC [Concomitant]
     Indication: GASTROOESOPHAGEAL REFLUX DISEASE

REACTIONS (8)
  - ALTERED VISUAL DEPTH PERCEPTION [None]
  - CONFUSIONAL STATE [None]
  - DEPRESSION [None]
  - DRUG DOSE OMISSION [None]
  - FEELING ABNORMAL [None]
  - FORMICATION [None]
  - HYPERSOMNIA [None]
  - TREMOR [None]
